FAERS Safety Report 20779943 (Version 1)
Quarter: 2022Q2

REPORT INFORMATION
  Report Type: Spontaneous
  Country: US (occurrence: US)
  Receive Date: 20220503
  Receipt Date: 20220503
  Transmission Date: 20220721
  Serious: Yes (Other)
  Sender: FDA-Public Use
  Company Number: US-NOVARTISPH-NVSC2022US099466

PATIENT
  Age: 53 Year
  Sex: Female

DRUGS (9)
  1. TRIAMCINOLONE [Suspect]
     Active Substance: TRIAMCINOLONE
     Indication: Laryngeal stenosis
     Dosage: 2 ML (40 MG/ML), QMO, LOCATION-OR
     Route: 026
     Dates: start: 20181031, end: 20181031
  2. TRIAMCINOLONE [Suspect]
     Active Substance: TRIAMCINOLONE
     Dosage: 2 ML (40 MG/ML), QMO, LOCATION-CLINIC
     Route: 026
     Dates: start: 20181203, end: 20181203
  3. TRIAMCINOLONE [Suspect]
     Active Substance: TRIAMCINOLONE
     Dosage: 2 ML (40 MG/ML), QMO, LOCATION-CLINIC
     Route: 026
     Dates: start: 20190103, end: 20190103
  4. TRIAMCINOLONE [Suspect]
     Active Substance: TRIAMCINOLONE
     Dosage: 2 ML (40 MG/ML), QMO, LOCATION-CLINIC
     Route: 026
     Dates: start: 20190215, end: 20190215
  5. TRIAMCINOLONE [Suspect]
     Active Substance: TRIAMCINOLONE
     Dosage: 2 ML (40 MG/ML), QMO, LOCATION-CLINIC
     Route: 026
     Dates: start: 20190315, end: 20190315
  6. TRIAMCINOLONE [Suspect]
     Active Substance: TRIAMCINOLONE
     Dosage: 2 ML (40 MG/ML), QMO, LOCATION-OR
     Route: 026
     Dates: start: 20190605, end: 20190605
  7. TRIAMCINOLONE [Suspect]
     Active Substance: TRIAMCINOLONE
     Dosage: 2 ML (40 MG/ML), QMO, LOCATION-CLINIC
     Route: 026
     Dates: start: 20190625, end: 20190625
  8. TRIAMCINOLONE [Suspect]
     Active Substance: TRIAMCINOLONE
     Dosage: 2 ML (40 MG/ML), QMO, LOCATION-CLINIC
     Route: 026
     Dates: start: 20190723, end: 20190723
  9. TRIAMCINOLONE [Suspect]
     Active Substance: TRIAMCINOLONE
     Dosage: 2 ML (40 MG/ML), QMO, LOCATION-CLINIC
     Route: 026
     Dates: start: 20190820, end: 20190820

REACTIONS (2)
  - Cushing^s syndrome [Recovered/Resolved]
  - Product use in unapproved indication [Unknown]
